FAERS Safety Report 14662121 (Version 1)
Quarter: 2018Q1

REPORT INFORMATION
  Report Type: Spontaneous
  Country: ES (occurrence: ES)
  Receive Date: 20180321
  Receipt Date: 20180321
  Transmission Date: 20180509
  Serious: Yes (Other)
  Sender: FDA-Public Use
  Company Number: ES-HETERO CORPORATE-HET2018ES00202

PATIENT
  Age: 87 Year
  Sex: Female

DRUGS (1)
  1. VALACYCLOVIR [Suspect]
     Active Substance: VALACYCLOVIR HYDROCHLORIDE
     Indication: RASH VESICULAR
     Dosage: 1 G, TID (1G/8H)
     Route: 048

REACTIONS (3)
  - Accidental overdose [Recovered/Resolved]
  - Neurotoxicity [Recovered/Resolved]
  - Acute kidney injury [Recovered/Resolved]
